FAERS Safety Report 9535062 (Version 1)
Quarter: 2013Q3

REPORT INFORMATION
  Report Type: Spontaneous
  Country: US (occurrence: US)
  Receive Date: 20130918
  Receipt Date: 20130918
  Transmission Date: 20140515
  Serious: No
  Sender: FDA-Public Use
  Company Number: US-009507513-1307USA014802

PATIENT
  Sex: 0

DRUGS (1)
  1. SINGULAIR [Suspect]
     Dosage: 10 MG, QD

REACTIONS (4)
  - Asthma [Unknown]
  - Dyspnoea [Unknown]
  - Feeling abnormal [Unknown]
  - Drug dose omission [Unknown]
